FAERS Safety Report 8380971-1 (Version None)
Quarter: 2012Q2

REPORT INFORMATION
  Report Type: 
  Country: None (occurrence: None)
  Receive Date: 20120515
  Receipt Date: 20120503
  Transmission Date: 20120825
  Serious: Yes (Other)
  Sender: FDA-Public Use
  Company Number: 2012032243

PATIENT
  Age: 32 Year
  Sex: Female

DRUGS (6)
  1. IMMUNE GLOBULIN INTRAVENOUS (HUMAN) [Suspect]
  2. INTRALIPID 10% [Suspect]
  3. PREDNISOLONE [Concomitant]
  4. PROGESTERONE [Concomitant]
  5. ASPIRIN [Concomitant]
  6. CYCLOGEST (PROGRESTERONE) [Concomitant]

REACTIONS (3)
  - MATERNAL EXPOSURE DURING PREGNANCY [None]
  - FOETAL GROWTH RESTRICTION [None]
  - FOETAL DEATH [None]
